FAERS Safety Report 14991860 (Version 4)
Quarter: 2023Q1

REPORT INFORMATION
  Report Type: Spontaneous
  Country: PL (occurrence: PL)
  Receive Date: 20180608
  Receipt Date: 20230224
  Transmission Date: 20230418
  Serious: Yes (Other)
  Sender: FDA-Public Use
  Company Number: PHHY2018PL012730

PATIENT
  Age: 46 Year
  Sex: Male

DRUGS (13)
  1. PREDNISONE [Suspect]
     Active Substance: PREDNISONE
     Indication: Renal transplant
     Dosage: UNK
     Route: 065
  2. PREDNISONE [Suspect]
     Active Substance: PREDNISONE
     Indication: Immunosuppressant drug therapy
  3. TACROLIMUS [Suspect]
     Active Substance: TACROLIMUS
     Indication: Renal transplant
     Dosage: UNK
     Route: 065
  4. TACROLIMUS [Suspect]
     Active Substance: TACROLIMUS
     Indication: Immunosuppressant drug therapy
  5. MYCOPHENOLATE MOFETIL [Suspect]
     Active Substance: MYCOPHENOLATE MOFETIL
     Indication: Renal transplant
     Dosage: UNK
     Route: 065
  6. MYCOPHENOLATE MOFETIL [Suspect]
     Active Substance: MYCOPHENOLATE MOFETIL
     Indication: Immunosuppressant drug therapy
  7. AMOXICILLIN [Concomitant]
     Active Substance: AMOXICILLIN
     Indication: Bacterial infection
     Dosage: UNK
     Route: 065
  8. COTRIMOXAZOLE [Concomitant]
     Active Substance: SULFAMETHOXAZOLE\TRIMETHOPRIM
     Indication: Product used for unknown indication
     Dosage: UNK
     Route: 065
  9. VALGANCICLOVIR [Concomitant]
     Active Substance: VALGANCICLOVIR
     Indication: Product used for unknown indication
     Dosage: UNK
     Route: 065
  10. CEFTRIAXONE [Concomitant]
     Active Substance: CEFTRIAXONE
     Indication: Bacterial infection
     Dosage: UNK
     Route: 065
  11. CLARITHROMYCIN [Concomitant]
     Active Substance: CLARITHROMYCIN
     Indication: Bacterial infection
     Dosage: UNK
     Route: 065
  12. CLINDAMYCIN [Concomitant]
     Active Substance: CLINDAMYCIN
     Indication: Bacterial infection
     Dosage: UNK
     Route: 065
  13. IMIPENEM [Concomitant]
     Active Substance: IMIPENEM
     Indication: Bacterial infection
     Dosage: UNK
     Route: 065

REACTIONS (1)
  - Bronchopulmonary aspergillosis [Recovered/Resolved]
